FAERS Safety Report 24293725 (Version 1)
Quarter: 2024Q3

REPORT INFORMATION
  Report Type: Spontaneous
  Country: US (occurrence: None)
  Receive Date: 20240906
  Receipt Date: 20240906
  Transmission Date: 20241016
  Serious: No
  Sender: DOMPE FARMACEUTICI
  Company Number: US-FARMAPROD-202308-202402-0582

PATIENT
  Age: 79 Year
  Sex: Female
  Weight: 76.2 kg

DRUGS (12)
  1. OXERVATE [Suspect]
     Active Substance: CENEGERMIN-BKBJ
     Indication: Neurotrophic keratopathy
     Route: 047
     Dates: start: 20240213
  2. MAGNESIUM [Concomitant]
     Active Substance: MAGNESIUM
  3. CHOLESTYRAMINE [Concomitant]
     Active Substance: CHOLESTYRAMINE
     Dosage: POWDER PACK
  4. SPIRONOLACTONE [Concomitant]
     Active Substance: SPIRONOLACTONE
  5. DESOXIMETASONE [Concomitant]
     Active Substance: DESOXIMETASONE
  6. CELECOXIB [Concomitant]
     Active Substance: CELECOXIB
  7. PREMARIN [Concomitant]
     Active Substance: ESTROGENS, CONJUGATED
  8. IPRATROPIUM BROMIDE [Concomitant]
     Active Substance: IPRATROPIUM BROMIDE\IPRATROPIUM BROMIDE ANHYDROUS
  9. VITAMIN D3 [Concomitant]
     Active Substance: CHOLECALCIFEROL
  10. FUROSEMIDE [Concomitant]
     Active Substance: FUROSEMIDE
  11. FISH OIL [Concomitant]
     Active Substance: FISH OIL
     Dosage: 1200-144MG
  12. ATENOLOL [Concomitant]
     Active Substance: ATENOLOL

REACTIONS (6)
  - Hypertension [Unknown]
  - Eye swelling [Not Recovered/Not Resolved]
  - Swelling face [Recovering/Resolving]
  - Oedema peripheral [Recovering/Resolving]
  - Oedema peripheral [Recovering/Resolving]
  - Eye pain [Unknown]

NARRATIVE: CASE EVENT DATE: 20240201
